FAERS Safety Report 10152981 (Version 1)
Quarter: 2014Q2

REPORT INFORMATION
  Report Type: Spontaneous
  Country: IT (occurrence: IT)
  Receive Date: 20140505
  Receipt Date: 20140505
  Transmission Date: 20141212
  Serious: Yes (Other)
  Sender: FDA-Public Use
  Company Number: IT-WATSON-2014-08806

PATIENT
  Age: 71 Year
  Sex: Female
  Weight: 65 kg

DRUGS (6)
  1. RISPERIDONE (UNKNOWN) [Suspect]
     Indication: DEMENTIA ALZHEIMER^S TYPE
     Dosage: 1 MG, UNKNOWN
     Route: 065
     Dates: start: 200401, end: 200802
  2. RISPERIDONE (UNKNOWN) [Suspect]
     Dosage: 0.5 MG, UNKNOWN
     Route: 065
     Dates: start: 200301, end: 200401
  3. DONEPEZIL [Concomitant]
     Indication: DEMENTIA ALZHEIMER^S TYPE
     Dosage: 10 MG, DAILY
     Route: 065
     Dates: start: 200201
  4. DONEPEZIL [Concomitant]
     Dosage: 5 MG, DAILY
     Route: 065
     Dates: start: 200107, end: 200201
  5. SERTRALINE [Concomitant]
     Indication: DEMENTIA ALZHEIMER^S TYPE
     Dosage: 50 MG, DAILY
     Route: 065
     Dates: start: 200201
  6. ZOLPIDEM [Concomitant]
     Indication: DEMENTIA ALZHEIMER^S TYPE
     Dosage: 10 MG, DAILY
     Route: 065
     Dates: start: 200207

REACTIONS (1)
  - Parkinsonism [Unknown]
